FAERS Safety Report 6856819-0 (Version None)
Quarter: 2010Q3

REPORT INFORMATION
  Report Type: 
  Country: None (occurrence: None)
  Receive Date: 20100719
  Receipt Date: 20100713
  Transmission Date: 20110219
  Serious: Yes (Hospitalization, Other)
  Sender: FDA-Public Use
  Company Number: NL-ELI_LILLY_AND_COMPANY-NL201007003080

PATIENT
  Age: 58 Year
  Sex: Male

DRUGS (2)
  1. EFFIENT [Suspect]
  2. REOPRO [Concomitant]

REACTIONS (1)
  - CEREBROVASCULAR ACCIDENT [None]
